FAERS Safety Report 6564524-3 (Version None)
Quarter: 2010Q1

REPORT INFORMATION
  Report Type: 
  Country: None (occurrence: None)
  Receive Date: 20100201
  Receipt Date: 20100119
  Transmission Date: 20100710
  Serious: Yes (Hospitalization, Other)
  Sender: FDA-Public Use
  Company Number: US-ELI_LILLY_AND_COMPANY-US201001004084

PATIENT
  Sex: Female

DRUGS (1)
  1. FORTEO [Suspect]
     Indication: OSTEOPOROSIS
     Dosage: 20 UG, DAILY (1/D)
     Dates: start: 20090901

REACTIONS (7)
  - EAR DISORDER [None]
  - FALL [None]
  - GAIT DISTURBANCE [None]
  - LOWER LIMB FRACTURE [None]
  - MALAISE [None]
  - MEDICAL DEVICE REMOVAL [None]
  - STAPHYLOCOCCAL INFECTION [None]
